FAERS Safety Report 20683114 (Version 1)
Quarter: 2022Q2

REPORT INFORMATION
  Report Type: Spontaneous
  Country: US (occurrence: US)
  Receive Date: 20220407
  Receipt Date: 20220407
  Transmission Date: 20220721
  Serious: Yes (Death, Hospitalization, Other)
  Sender: FDA-Public Use
  Company Number: US-AMGEN-USASP2022055315

PATIENT
  Age: 38 Year
  Sex: Male

DRUGS (6)
  1. CINACALCET HYDROCHLORIDE [Suspect]
     Active Substance: CINACALCET HYDROCHLORIDE
     Indication: Product used for unknown indication
     Dosage: UNK
     Route: 065
  2. CALCITRIOL [Concomitant]
     Active Substance: CALCITRIOL
  3. SEVELAMER CARBONATE [Concomitant]
     Active Substance: SEVELAMER CARBONATE
  4. SODIUM THIOSULFATE [Concomitant]
     Active Substance: SODIUM THIOSULFATE
  5. AMPHOTERICIN B [Concomitant]
     Active Substance: AMPHOTERICIN B
     Route: 042
  6. PREDNISONE [Concomitant]
     Active Substance: PREDNISONE

REACTIONS (11)
  - Calciphylaxis [Fatal]
  - Cardiac arrest [Fatal]
  - Arteriosclerosis [Fatal]
  - Skin bacterial infection [Recovered/Resolved]
  - Osteomyelitis [Unknown]
  - Peripheral vascular disorder [Unknown]
  - Pseudomonas infection [Unknown]
  - Coccidioidomycosis [Unknown]
  - Blindness [Unknown]
  - Escherichia infection [Unknown]
  - Dyspnoea [Recovered/Resolved]
